FAERS Safety Report 12877200 (Version 1)
Quarter: 2016Q4

REPORT INFORMATION
  Report Type: Spontaneous
  Country: US (occurrence: US)
  Receive Date: 20161023
  Receipt Date: 20161023
  Transmission Date: 20170207
  Serious: Yes (Other)
  Sender: FDA-Public Use
  Company Number: None

PATIENT
  Age: 79 Year
  Sex: Male
  Weight: 67.5 kg

DRUGS (7)
  1. DIURETIC [Concomitant]
     Active Substance: UNSPECIFIED INGREDIENT
  2. CALCIUM CHANNEL BLOCKER [Concomitant]
     Active Substance: UNSPECIFIED INGREDIENT
  3. DOXAZASIN [Concomitant]
  4. CIALIS [Suspect]
     Active Substance: TADALAFIL
     Indication: BENIGN PROSTATIC HYPERPLASIA
     Dosage: QUANTITY:30 TABLET(S); DAILY; ORAL?
     Route: 048
     Dates: start: 20161018, end: 20161022
  5. LIPITOR [Concomitant]
     Active Substance: ATORVASTATIN CALCIUM
  6. AREDS VITAMINS [Concomitant]
  7. ZETIA [Concomitant]
     Active Substance: EZETIMIBE

REACTIONS (1)
  - Dyspepsia [None]

NARRATIVE: CASE EVENT DATE: 20161023
